FAERS Safety Report 19508723 (Version 4)
Quarter: 2023Q2

REPORT INFORMATION
  Report Type: Spontaneous
  Country: US (occurrence: US)
  Receive Date: 20210708
  Receipt Date: 20230413
  Transmission Date: 20230722
  Serious: Yes (Hospitalization)
  Sender: FDA-Public Use
  Company Number: US-TEVA-2021-US-1928804

PATIENT
  Age: 12 Year
  Sex: Male

DRUGS (3)
  1. ALPRAZOLAM [Suspect]
     Active Substance: ALPRAZOLAM
     Indication: Drug abuse
     Route: 065
  2. VALPROIC ACID [Suspect]
     Active Substance: VALPROIC ACID
     Indication: Withdrawal syndrome
     Dosage: 250 MILLIGRAM DAILY;
     Route: 065
  3. CHLORDIAZEPOXIDE [Suspect]
     Active Substance: CHLORDIAZEPOXIDE
     Indication: Withdrawal syndrome
     Dosage: 425 MG
     Route: 065

REACTIONS (6)
  - Drug dependence [Not Recovered/Not Resolved]
  - Drug dependence [Not Recovered/Not Resolved]
  - Withdrawal syndrome [Recovering/Resolving]
  - Toxicity to various agents [Unknown]
  - Drug abuse [Unknown]
  - Drug ineffective [Unknown]
